FAERS Safety Report 5239536-2 (Version None)
Quarter: 2007Q1

REPORT INFORMATION
  Report Type: 
  Country: None (occurrence: None)
  Receive Date: 20070216
  Receipt Date: 20070208
  Transmission Date: 20070707
  Serious: Yes (Death, Other)
  Sender: FDA-Public Use
  Company Number: JP-AVENTIS-200710255JP

PATIENT
  Age: 88 Year
  Sex: Female

DRUGS (5)
  1. TARGOCID [Suspect]
     Route: 041
     Dates: start: 20070126
  2. DAONIL [Suspect]
     Route: 048
     Dates: end: 20070126
  3. CLARITHROMYCIN [Suspect]
     Route: 048
     Dates: start: 20070118, end: 20070125
  4. CLEANAL [Concomitant]
     Route: 048
  5. MELBIN                             /00082702/ [Concomitant]
     Route: 048
     Dates: end: 20070128

REACTIONS (3)
  - BLOOD GLUCOSE INCREASED [None]
  - DEATH [None]
  - HYPOGLYCAEMIA [None]
